FAERS Safety Report 5690505-8 (Version None)
Quarter: 2008Q2

REPORT INFORMATION
  Report Type: 
  Country: None (occurrence: None)
  Receive Date: 20080401
  Receipt Date: 20040528
  Transmission Date: 20081010
  Serious: Yes (Death, Other)
  Sender: FDA-Public Use
  Company Number: US-ROCHE-369664

PATIENT
  Age: 68 Year
  Sex: Male

DRUGS (1)
  1. CAPECITABINE [Suspect]
     Route: 065

REACTIONS (3)
  - CARCINOEMBRYONIC ANTIGEN INCREASED [None]
  - DISEASE PROGRESSION [None]
  - VOMITING [None]
